FAERS Safety Report 6409773-X (Version None)
Quarter: 2009Q4

REPORT INFORMATION
  Report Type: 
  Country: None (occurrence: None)
  Receive Date: 20091021
  Receipt Date: 20091021
  Transmission Date: 20100525
  Serious: Yes (Hospitalization)
  Sender: FDA-Public Use
  Company Number: None

PATIENT
  Sex: Male
  Weight: 77.1 kg

DRUGS (8)
  1. CYCLOPHOSPHAMIDE [Suspect]
     Dosage: 1800 MG
  2. CYTARABINE [Concomitant]
     Dosage: 1080 MG
  3. DEXAMETHASONE [Suspect]
     Dosage: 252 MG
  4. DOXORUBICIN HCL [Suspect]
     Dosage: 132 MG
  5. METHOTREXATE [Suspect]
     Dosage: 0 MG
  6. PEG-L-ASPARAGINASE (K-H) [Suspect]
     Dosage: 4500 UNIT
  7. THIOGUANINE [Suspect]
     Dosage: 1480 MG
  8. VINCRISTINE SULFATE [Suspect]
     Dosage: 10 MG

REACTIONS (1)
  - FEBRILE NEUTROPENIA [None]
